FAERS Safety Report 9017080 (Version 1)
Quarter: 2013Q1

REPORT INFORMATION
  Report Type: Spontaneous
  Country: US (occurrence: US)
  Receive Date: 20130117
  Receipt Date: 20130117
  Transmission Date: 20140127
  Serious: Yes (Other)
  Sender: FDA-Public Use
  Company Number: US-009507513-0909USA03393

PATIENT
  Age: 10 Year
  Sex: Male
  Weight: 33.11 kg

DRUGS (1)
  1. SINGULAIR [Suspect]
     Indication: ASTHMA
     Dosage: 5 MG, QD
     Route: 048
     Dates: start: 20020612, end: 20090304

REACTIONS (6)
  - Self-injurious ideation [Unknown]
  - Mood altered [Unknown]
  - Crying [Unknown]
  - Anger [Unknown]
  - Aggression [Unknown]
  - Irritability [Unknown]
